FAERS Safety Report 21978436 (Version 9)
Quarter: 2023Q4

REPORT INFORMATION
  Report Type: Spontaneous
  Country: US (occurrence: US)
  Receive Date: 20230210
  Receipt Date: 20231115
  Transmission Date: 20240110
  Serious: No
  Sender: FDA-Public Use
  Company Number: US-PFIZER INC-PV202300024895

PATIENT
  Age: 48 Year
  Sex: Female

DRUGS (7)
  1. IBRANCE [Suspect]
     Active Substance: PALBOCICLIB
     Indication: Breast cancer female
     Dosage: ONCE DAILY AFTER A MEAL FOR 21 DAYS ON THEN 7 DAYS OFF
     Route: 048
     Dates: start: 20230207, end: 2023
  2. IBRANCE [Suspect]
     Active Substance: PALBOCICLIB
     Dosage: AFTER A MEAL FOR 21 DAYS, THEN 7 DAYS OFF)
     Route: 048
     Dates: start: 20230317
  3. ANASTROZOLE [Concomitant]
     Active Substance: ANASTROZOLE
     Dosage: 1 MG
  4. LEVOTHYROXINE [Concomitant]
     Active Substance: LEVOTHYROXINE
     Dosage: 150 UG
  5. TAMOXIFEN [Concomitant]
     Active Substance: TAMOXIFEN
     Dosage: 20 MG
  6. GOSERELIN [Concomitant]
     Active Substance: GOSERELIN
     Dosage: 10.8MG
  7. ZOLEDRONIC [Concomitant]
     Active Substance: ZOLEDRONIC ACID
     Dosage: 4MG/5ML

REACTIONS (16)
  - Hot flush [Not Recovered/Not Resolved]
  - White blood cell count decreased [Not Recovered/Not Resolved]
  - Fatigue [Not Recovered/Not Resolved]
  - Nausea [Not Recovered/Not Resolved]
  - Brain fog [Not Recovered/Not Resolved]
  - Memory impairment [Not Recovered/Not Resolved]
  - Bone pain [Not Recovered/Not Resolved]
  - Lacrimation increased [Unknown]
  - Product dose omission in error [Unknown]
  - Arthralgia [Unknown]
  - Sleep disorder [Unknown]
  - Anaemia [Unknown]
  - Vision blurred [Unknown]
  - Eye pain [Unknown]
  - Cough [Unknown]
  - Gastrooesophageal reflux disease [Unknown]

NARRATIVE: CASE EVENT DATE: 20230101
